FAERS Safety Report 5676206-0 (Version None)
Quarter: 2008Q1

REPORT INFORMATION
  Report Type: 
  Country: None (occurrence: None)
  Receive Date: 20080321
  Receipt Date: 20080311
  Transmission Date: 20080703
  Serious: Yes (Other)
  Sender: FDA-Public Use
  Company Number: DE-PFIZER INC-2007094846

PATIENT
  Sex: Female

DRUGS (2)
  1. ZELDOX (CAPSULES) [Suspect]
     Route: 048
  2. TAFIL [Suspect]
     Route: 048

REACTIONS (6)
  - BRONCHIAL DISORDER [None]
  - DRUG DISPENSING ERROR [None]
  - DYSPHAGIA [None]
  - INFLAMMATION [None]
  - MUSCLE SPASTICITY [None]
  - TREMOR [None]
